FAERS Safety Report 4975269-5 (Version None)
Quarter: 2006Q2

REPORT INFORMATION
  Report Type: 
  Country: None (occurrence: None)
  Receive Date: 20060418
  Receipt Date: 20060313
  Transmission Date: 20061013
  Serious: Yes (Hospitalization)
  Sender: FDA-Public Use
  Company Number: US-MERCK-0603USA02287

PATIENT
  Age: 74 Year
  Sex: Male
  Weight: 81 kg

DRUGS (29)
  1. VIOXX [Suspect]
     Route: 048
     Dates: start: 20000629, end: 20040823
  2. VIOXX [Suspect]
     Route: 048
     Dates: start: 20000629, end: 20040823
  3. FLOMAX (MORNIFLUMATE) [Concomitant]
     Route: 065
  4. QUININE SULFATE [Concomitant]
     Route: 065
  5. HYDROXYZINE HYDROCHLORIDE [Concomitant]
     Route: 065
  6. ANTIMICROBIAL (UNSPECIFIED) [Concomitant]
     Route: 065
  7. ZYRTEC [Concomitant]
     Route: 065
  8. PHENAZOPYRIDINE HYDROCHLORIDE [Concomitant]
     Route: 065
  9. MUCINEX [Concomitant]
     Route: 065
  10. MACROBID [Concomitant]
     Route: 065
  11. LEVAQUIN [Concomitant]
     Route: 065
  12. DIAZEPAM [Concomitant]
     Route: 065
  13. VIAGRA [Concomitant]
     Route: 065
  14. DOXAZOSIN MESYLATE [Concomitant]
     Route: 065
  15. LIPITOR [Concomitant]
     Route: 065
  16. TRIMOX [Concomitant]
     Route: 065
  17. METOCLOPRAMIDE [Concomitant]
     Route: 065
  18. CYCLOBENZAPRINE HYDROCHLORIDE [Concomitant]
     Route: 065
  19. CARDURA [Concomitant]
     Route: 065
  20. DARVOCET [Concomitant]
     Route: 065
  21. CARTIA XT [Concomitant]
     Route: 065
  22. PRILOSEC [Concomitant]
     Route: 065
  23. PROTONIX [Concomitant]
     Route: 065
  24. GUAIFENEX LA [Concomitant]
     Route: 065
  25. ZITHROMAX [Concomitant]
     Route: 065
  26. NASACORT [Concomitant]
     Route: 065
  27. METYPRED [Concomitant]
     Route: 065
  28. CLARITIN-D [Concomitant]
     Route: 065
  29. AUGMENTIN '125' [Concomitant]
     Route: 065

REACTIONS (5)
  - ARTHROPATHY [None]
  - CARDIAC DISORDER [None]
  - PROSTATIC DISORDER [None]
  - ROTATOR CUFF SYNDROME [None]
  - THROMBOSIS [None]
